FAERS Safety Report 24629316 (Version 1)
Quarter: 2024Q4

REPORT INFORMATION
  Report Type: Spontaneous
  Country: AT (occurrence: AT)
  Receive Date: 20241118
  Receipt Date: 20241118
  Transmission Date: 20250115
  Serious: Yes (Other)
  Sender: ALEXION PHARMACEUTICALS
  Company Number: AT-ASTRAZENECA-202411GLO009441AT

PATIENT

DRUGS (1)
  1. SEROQUEL [Suspect]
     Active Substance: QUETIAPINE FUMARATE
     Indication: Exposure during pregnancy

REACTIONS (12)
  - Seizure [Unknown]
  - Pectus excavatum [Unknown]
  - Disturbance in attention [Unknown]
  - Dyslexia [Unknown]
  - Visual impairment [Unknown]
  - Tic [Unknown]
  - Dyspnoea [Unknown]
  - Restlessness [Unknown]
  - Facial spasm [Unknown]
  - Disability [Unknown]
  - Eye movement disorder [Unknown]
  - Depression [Unknown]
